FAERS Safety Report 4462591-4 (Version None)
Quarter: 2004Q3

REPORT INFORMATION
  Report Type: 
  Country: None (occurrence: None)
  Receive Date: 20040928
  Receipt Date: 20040914
  Transmission Date: 20050211
  Serious: Yes (Other)
  Sender: FDA-Public Use
  Company Number: 2004230948JP

PATIENT
  Age: 14 Year
  Sex: Female
  Weight: 51.5 kg

DRUGS (2)
  1. GENOTROPIN [Suspect]
     Indication: HYPOPITUITARISM
     Dosage: 1.3 MG, QD, SUBCUTANEOUS
     Route: 058
     Dates: start: 20000413, end: 20000607
  2. GENOTROPIN [Suspect]
     Indication: HYPOPITUITARISM
     Dosage: 1.3 MG, QD, SUBCUTANEOUS
     Route: 058
     Dates: start: 20010201, end: 20021001

REACTIONS (5)
  - COMPLEMENT FACTOR DECREASED [None]
  - DISEASE RECURRENCE [None]
  - DRUG HYPERSENSITIVITY [None]
  - PYREXIA [None]
  - SYSTEMIC LUPUS ERYTHEMATOSUS [None]
